FAERS Safety Report 12700179 (Version 1)
Quarter: 2016Q3

REPORT INFORMATION
  Report Type: Spontaneous
  Country: US (occurrence: US)
  Receive Date: 20160830
  Receipt Date: 20160830
  Transmission Date: 20161109
  Serious: Yes (Hospitalization)
  Sender: FDA-Public Use
  Company Number: US-LPDUSPRD-20160753

PATIENT
  Age: 66 Year
  Sex: Male

DRUGS (8)
  1. ANTIRETROVIRAL THERAPY [Concomitant]
     Active Substance: UNSPECIFIED INGREDIENT
     Dosage: DOSE NOT PROVIDED
     Route: 065
  2. SUFENTANIL [Concomitant]
     Active Substance: SUFENTANIL
     Dosage: DOSE NOT PROVIDED
     Route: 065
  3. FENTANYL. [Concomitant]
     Active Substance: FENTANYL
     Dosage: DOSE NOT PROVIDED
     Route: 065
  4. LIDOCAINE. [Concomitant]
     Active Substance: LIDOCAINE
     Dosage: DOSE NOT PROVIDED
     Route: 065
  5. TRANEXAMIC ACID INJECTION(0517-0960-01) [Suspect]
     Active Substance: TRANEXAMIC ACID
     Dosage: 1 G BOLUS; 1 MG/KG/HR AFTER
     Route: 065
  6. MIDAZOLAM [Concomitant]
     Active Substance: MIDAZOLAM\MIDAZOLAM HYDROCHLORIDE
     Dosage: DOSE UNKNOWN
     Route: 065
  7. PROPOFOL. [Concomitant]
     Active Substance: PROPOFOL
     Dosage: DOSE NOT PROVIDED
     Route: 065
  8. DESFLURANE. [Concomitant]
     Active Substance: DESFLURANE
     Dosage: DOSE NOT PROVIDED
     Route: 065

REACTIONS (2)
  - Acute myocardial infarction [Recovered/Resolved]
  - Intracardiac thrombus [Recovered/Resolved]
